FAERS Safety Report 24544536 (Version 1)
Quarter: 2024Q4

REPORT INFORMATION
  Report Type: Spontaneous
  Country: FR (occurrence: FR)
  Receive Date: 20241024
  Receipt Date: 20241024
  Transmission Date: 20250114
  Serious: Yes (Life-Threatening)
  Sender: PFIZER
  Company Number: None

PATIENT
  Age: 65 Year
  Sex: Male
  Weight: 62.5 kg

DRUGS (7)
  1. LEVETIRACETAM [Suspect]
     Active Substance: LEVETIRACETAM
     Indication: Poisoning deliberate
     Dosage: 10 G, SINGLE
     Route: 048
     Dates: start: 20230906, end: 20230906
  2. NICARDIPINE HYDROCHLORIDE [Suspect]
     Active Substance: NICARDIPINE HYDROCHLORIDE
     Indication: Poisoning deliberate
     Dosage: 12 DF, SINGLE
     Route: 048
     Dates: start: 20230906, end: 20230906
  3. RILMENIDINE [Suspect]
     Active Substance: RILMENIDINE
     Indication: Poisoning deliberate
     Dosage: 8 MG, SINGLE
     Route: 048
     Dates: start: 20230906, end: 20230906
  4. PERINDOPRIL [Suspect]
     Active Substance: PERINDOPRIL
     Indication: Poisoning deliberate
     Dosage: 32 MG, SINGLE
     Route: 048
     Dates: start: 20230906, end: 20230906
  5. ATORVASTATIN [Suspect]
     Active Substance: ATORVASTATIN
     Indication: Poisoning deliberate
     Dosage: 160 MG, SINGLE
     Route: 048
     Dates: start: 20230906, end: 20230906
  6. ESOMEPRAZOLE [Suspect]
     Active Substance: ESOMEPRAZOLE
     Indication: Poisoning deliberate
     Dosage: 160 MG, SINGLE
     Route: 048
     Dates: start: 20230906, end: 20230906
  7. ASPIRIN [Suspect]
     Active Substance: ASPIRIN
     Indication: Poisoning deliberate
     Dosage: 800 MG, SINGLE
     Route: 048
     Dates: start: 20230906, end: 20230906

REACTIONS (3)
  - Intentional overdose [Recovered/Resolved]
  - Circulatory collapse [Recovered/Resolved]
  - Poisoning deliberate [Unknown]

NARRATIVE: CASE EVENT DATE: 20230906
